FAERS Safety Report 8875703 (Version 1)
Quarter: 2012Q4

REPORT INFORMATION
  Report Type: Report from Study
  Country: DE (occurrence: DE)
  Receive Date: 20121030
  Receipt Date: 20121030
  Transmission Date: 20130627
  Serious: Yes (Hospitalization)
  Sender: FDA-Public Use
  Company Number: PHHO2012DE015612

PATIENT
  Age: 64 Year
  Sex: Male
  Weight: 86 kg

DRUGS (2)
  1. EVEROLIMUS [Suspect]
     Indication: GASTROINTESTINAL STROMAL TUMOUR
     Dosage: 5 mg, BID
     Route: 048
     Dates: start: 20061013
  2. GLIVEC [Suspect]
     Indication: GASTROINTESTINAL STROMAL TUMOUR
     Dosage: 400 mg, QD
     Route: 048
     Dates: start: 20061013

REACTIONS (1)
  - Goitre [Recovered/Resolved]
